FAERS Safety Report 23308649 (Version 6)
Quarter: 2024Q1

REPORT INFORMATION
  Report Type: Report from Study
  Country: US (occurrence: US)
  Receive Date: 20231218
  Receipt Date: 20240329
  Transmission Date: 20240410
  Serious: Yes (Other)
  Sender: FDA-Public Use
  Company Number: US-002147023-NVSC2023US266495

PATIENT
  Sex: Male

DRUGS (1)
  1. KESIMPTA [Suspect]
     Active Substance: OFATUMUMAB
     Indication: Multiple sclerosis
     Dosage: 20 MG, QMO
     Route: 065

REACTIONS (6)
  - Spinal column injury [Unknown]
  - Neck pain [Unknown]
  - Malaise [Unknown]
  - Feeling abnormal [Unknown]
  - Condition aggravated [Unknown]
  - Disease progression [Unknown]
